FAERS Safety Report 5248269-8 (Version None)
Quarter: 2007Q1

REPORT INFORMATION
  Report Type: 
  Country: None (occurrence: None)
  Receive Date: 20070227
  Receipt Date: 20061024
  Transmission Date: 20070707
  Serious: No
  Sender: FDA-Public Use
  Company Number: US-BRISTOL-MYERS SQUIBB COMPANY-13554290

PATIENT
  Age: 79 Year
  Sex: Female
  Weight: 75 kg

DRUGS (5)
  1. METFORMIN HCL [Suspect]
     Indication: DIABETES MELLITUS
     Route: 048
     Dates: start: 20030101
  2. AVANDIA [Concomitant]
  3. INDAPAMIDE [Concomitant]
  4. ATENOLOL [Concomitant]
  5. ZOCOR [Concomitant]

REACTIONS (2)
  - ANAEMIA [None]
  - DIARRHOEA [None]
